FAERS Safety Report 6300428-9 (Version None)
Quarter: 2009Q3

REPORT INFORMATION
  Report Type: 
  Country: None (occurrence: None)
  Receive Date: 20090806
  Receipt Date: 20080922
  Transmission Date: 20100115
  Serious: No
  Sender: FDA-Public Use
  Company Number: US-ABBOTT-08P-163-0477121-00

PATIENT
  Sex: Male
  Weight: 100 kg

DRUGS (4)
  1. DEPAKOTE ER [Suspect]
     Indication: CONVULSION
     Dates: start: 20070301
  2. DEPAKOTE ER [Suspect]
     Dates: end: 20080415
  3. DEPAKOTE [Suspect]
     Indication: CONVULSION
     Route: 048
     Dates: start: 19890601
  4. DEPAKOTE [Suspect]
     Route: 048
     Dates: start: 20080417

REACTIONS (4)
  - ABDOMINAL DISCOMFORT [None]
  - CONVULSION [None]
  - TESTICULAR PAIN [None]
  - TONGUE BITING [None]
